FAERS Safety Report 6657234-5 (Version None)
Quarter: 2010Q1

REPORT INFORMATION
  Report Type: 
  Country: None (occurrence: None)
  Receive Date: 20100325
  Receipt Date: 20100310
  Transmission Date: 20100710
  Serious: Yes (Hospitalization)
  Sender: FDA-Public Use
  Company Number: 2010000852

PATIENT
  Age: 52 Year
  Sex: Female

DRUGS (1)
  1. TARCEVA [Suspect]
     Indication: PANCREATIC CARCINOMA
     Dosage: 100 MG, ORAL
     Route: 048
     Dates: start: 20070101, end: 20100302

REACTIONS (2)
  - DEVICE OCCLUSION [None]
  - DEVICE RELATED INFECTION [None]
